FAERS Safety Report 16312177 (Version 3)
Quarter: 2019Q2

REPORT INFORMATION
  Report Type: Spontaneous
  Country: SV (occurrence: SV)
  Receive Date: 20190515
  Receipt Date: 20190615
  Transmission Date: 20190711
  Serious: Yes (Death, Hospitalization, Other)
  Sender: FDA-Public Use
  Company Number: SV-ROCHE-2316863

PATIENT
  Age: 58 Year
  Sex: Female

DRUGS (5)
  1. TECENTRIQ [Suspect]
     Active Substance: ATEZOLIZUMAB
     Indication: OFF LABEL USE
     Route: 042
     Dates: start: 20190220
  2. NAB-PACLITAXEL [Concomitant]
     Active Substance: PACLITAXEL
     Indication: OFF LABEL USE
  3. TECENTRIQ [Suspect]
     Active Substance: ATEZOLIZUMAB
     Route: 042
     Dates: start: 20190304
  4. NAB-PACLITAXEL [Concomitant]
     Active Substance: PACLITAXEL
     Indication: TRIPLE NEGATIVE BREAST CANCER
  5. TECENTRIQ [Suspect]
     Active Substance: ATEZOLIZUMAB
     Indication: TRIPLE NEGATIVE BREAST CANCER
     Route: 042
     Dates: start: 20190202

REACTIONS (6)
  - Febrile infection [Recovered/Resolved]
  - Lung disorder [Fatal]
  - Intentional product use issue [Unknown]
  - Off label use [Unknown]
  - General physical health deterioration [Recovered/Resolved]
  - Pneumonia [Recovered/Resolved]

NARRATIVE: CASE EVENT DATE: 20190610
